FAERS Safety Report 5209161-8 (Version None)
Quarter: 2007Q1

REPORT INFORMATION
  Report Type: 
  Country: None (occurrence: None)
  Receive Date: 20070116
  Receipt Date: 20070103
  Transmission Date: 20070707
  Serious: Yes (Hospitalization)
  Sender: FDA-Public Use
  Company Number: GB-AVENTIS-200412872GDDC

PATIENT
  Age: 69 Year
  Sex: Female

DRUGS (7)
  1. DOCETAXEL [Suspect]
     Route: 042
     Dates: start: 20031222, end: 20040317
  2. CARBOPLATIN [Suspect]
     Route: 042
     Dates: start: 20031222, end: 20040317
  3. TARCEVA                            /01611401/ [Suspect]
     Route: 048
     Dates: start: 20031215, end: 20040301
  4. LOPERAMIDE HCL [Concomitant]
     Route: 048
     Dates: start: 20040229
  5. FORTIJUCE [Concomitant]
     Dates: start: 20040223
  6. CHLORHEXIDINE [Concomitant]
     Route: 048
     Dates: start: 20031222
  7. NYSTATIN [Concomitant]
     Route: 048
     Dates: start: 20041222

REACTIONS (2)
  - ELECTROLYTE IMBALANCE [None]
  - HYPOGLYCAEMIA [None]
